FAERS Safety Report 6032685-0 (Version None)
Quarter: 2009Q1

REPORT INFORMATION
  Report Type: 
  Country: None (occurrence: None)
  Receive Date: 20090109
  Receipt Date: 20081230
  Transmission Date: 20090719
  Serious: Yes (Hospitalization, Other)
  Sender: FDA-Public Use
  Company Number: US-PFIZER INC-2008096368

PATIENT
  Sex: Female
  Weight: 72.6 kg

DRUGS (11)
  1. TIKOSYN [Suspect]
  2. LEVOTHYROXINE SODIUM [Concomitant]
  3. VALSARTAN [Concomitant]
  4. CENESTIN [Concomitant]
  5. FAMOTIDINE [Concomitant]
  6. CALCIUM CITRATE/COLECALCIFEROL [Concomitant]
     Dosage: 4-5 TABLETS DAILY
  7. WARFARIN [Concomitant]
  8. IBANDRONATE SODIUM [Concomitant]
  9. MULTI-VITAMINS [Concomitant]
  10. BOTOX [Concomitant]
  11. TOPROL-XL [Concomitant]

REACTIONS (3)
  - ATRIAL FIBRILLATION [None]
  - EAR INFECTION [None]
  - SQUAMOUS CELL CARCINOMA [None]
